FAERS Safety Report 4365920-5 (Version None)
Quarter: 2004Q2

REPORT INFORMATION
  Report Type: 
  Country: None (occurrence: None)
  Receive Date: 20040524
  Receipt Date: 20040510
  Transmission Date: 20050107
  Serious: Yes (Disabling, Other)
  Sender: FDA-Public Use
  Company Number: 001-0981-M0000462

PATIENT
  Age: 43 Year
  Sex: Male
  Weight: 83.9154 kg

DRUGS (70)
  1. LIPITOR [Suspect]
     Indication: BLOOD CHOLESTEROL INCREASED
     Dosage: 10 MG (DAILY), ORAL
     Route: 048
     Dates: start: 19990716, end: 19991106
  2. VENLAFAXINE HCL [Suspect]
     Indication: ILL-DEFINED DISORDER
     Dates: start: 20000101
  3. PREDNISONE TAB [Suspect]
     Indication: DYSPHAGIA
     Dosage: 30 MG, ORAL
     Route: 048
     Dates: start: 20000113
  4. PREDNISONE TAB [Suspect]
     Indication: MUSCULOSKELETAL DISCOMFORT
     Dosage: 30 MG, ORAL
     Route: 048
     Dates: start: 20000113
  5. ETIDRONATE DISODIUM [Concomitant]
  6. CHOLESTYRAMINE [Concomitant]
  7. LANSOPRAZOLE [Concomitant]
  8. CALCIUM D3 ^STADA^ (CALCIUM, COLECALCIFEROL) [Concomitant]
  9. PREDNISONE TAB [Concomitant]
  10. BISOPROLOL FUMARATE [Concomitant]
  11. ACETYLSALICYLIC ACID SRT [Concomitant]
  12. NITROGLYCERIN [Concomitant]
  13. WELCHOL [Concomitant]
  14. DIAZEPAM [Concomitant]
  15. TIZANIDINE HCL [Concomitant]
  16. HYDROCODONE (HYDROCODONE) [Concomitant]
  17. PROCHLORPERAZINE [Concomitant]
  18. ZALEPLON (ZALEPLON) [Concomitant]
  19. METHYLPREDNISOLONE [Concomitant]
  20. METRONIDAZOLE [Concomitant]
  21. BENZONATATE (BENZONATATE) [Concomitant]
  22. PAROXETINE HCL [Concomitant]
  23. TRIAMCINOLONE [Concomitant]
  24. LIDOCAINE HYDROCHLORIDE [Concomitant]
  25. HEPATITIS B VACCINE (HEPATITIS B VACCINE) [Concomitant]
  26. ACETYLSALICYLIC ACID SRT [Concomitant]
  27. TOCOPHEROL CONCENTRATE CAP [Concomitant]
  28. KETOCONAZOLE (KETOCONAZOLE) [Concomitant]
  29. ACETAMINOPHEN [Concomitant]
  30. CENTRUM (VITAMINS NOS, MINERAL NOS) [Concomitant]
  31. SUCRALFATE [Concomitant]
  32. (U-LACTIN) (OTHER DERMATOLOGICAL PREPARATIONS) [Concomitant]
  33. (HALLS) (COUGH AND COLD PREPARATIONS) [Concomitant]
  34. IBUPROFEN [Concomitant]
  35. ALCOMYXINE (HYDROCORTISONE ACETATE, NEOMYCIN SULFATE, POLYMYCIN B SULF [Concomitant]
  36. AMANTADINE HCL [Concomitant]
  37. ALPRAZOLAM [Concomitant]
  38. NITROGLYCERIN [Concomitant]
  39. FERROUS GLUCONATE (FEROUS GLUCONATE) [Concomitant]
  40. MEFLOQUINE (MEFLOQUINE) [Concomitant]
  41. MINOCYCLINE HCL [Concomitant]
  42. FUROSEMIDE [Concomitant]
  43. VERAPAMIL [Concomitant]
  44. EPINEPHRINE [Concomitant]
  45. ATROPINE [Concomitant]
  46. ADENOSINE [Concomitant]
  47. HYDROCORTISONE SODIUM SUCCINATE [Concomitant]
  48. VICK VAPOUR-RUB (CAMPHOR, MENTHOL, THYMOL, CEDAR WOOD OIL, EUCALYPTUS [Concomitant]
  49. OXYMETAZOLINE HYDROCHLORIDE (OXYMETAZOLINE HYDROCHLORIDE) [Concomitant]
  50. DIPHENHYDRAMINE HCL [Concomitant]
  51. LOPERAMIDE HYDROCHLORIDE [Concomitant]
  52. ROBITUSSIN-DM (ETHANOL, GUAIFENESIN, DEXTROMETHORPHAN HYDROBROMIDE) [Concomitant]
  53. PROCTOFOAM HC (HYDROCORTISONE ACETATE, PRAMOCAINE HYDROCHLORIDE) [Concomitant]
  54. VALSARTAN (VALSARTAN) [Concomitant]
  55. HYDROCORTISONE [Concomitant]
  56. (CO-ENZYME 10) (UBIDECARENONE) [Concomitant]
  57. (CARMEX) (STOMATOLOGICALS, MOUTH PREPRATIONS) [Concomitant]
  58. NORTRIPTYLINE HCL [Concomitant]
  59. SULFACETAMIDE SODIUM [Concomitant]
  60. HYDROCORTISONE [Concomitant]
  61. LIBRAX [Concomitant]
  62. GAVISCON (SODIUM BICARBONATE, SODIUM ALGINATE BICARBONATE) [Concomitant]
  63. METRONIDAZOLE [Concomitant]
  64. DIFLORASONE DIACETATE (DIFLORASONE DIACETATE) [Concomitant]
  65. PROXYMETACAINE HYDROCHLORIDE (PROXYMETACAINE HYDROCHLORIDE) [Concomitant]
  66. TRETINOIN [Concomitant]
  67. (SOLBAR PF) (PROTECTIVES AGAINST UV-RADIATION) [Concomitant]
  68. AMMONIUM LACTATE (AMMONIUM LACTATE) [Concomitant]
  69. BENZOIN TINCTURE (BENZOIN TINCTURE) [Concomitant]
  70. ANUSOL-HC (HYDROCORTISONE ACETATE, RESORCINOL, BENZYL BENZOATE, ZINC O [Concomitant]

REACTIONS (70)
  - ABDOMINAL PAIN [None]
  - AGITATION [None]
  - ALDOLASE INCREASED [None]
  - AMYOTROPHIC LATERAL SCLEROSIS [None]
  - ARTHRALGIA [None]
  - ARTHROPATHY [None]
  - ASTHENIA [None]
  - ATHEROSCLEROSIS [None]
  - BLOOD AMYLASE INCREASED [None]
  - BLOOD CREATINE PHOSPHOKINASE INCREASED [None]
  - BLOOD GLUCOSE INCREASED [None]
  - BLOOD PRESSURE INCREASED [None]
  - BUNDLE BRANCH BLOCK RIGHT [None]
  - BURNING SENSATION [None]
  - CARDIOMYOPATHY [None]
  - CEREBRAL PALSY [None]
  - CLUMSINESS [None]
  - DECREASED APPETITE [None]
  - DEPRESSION [None]
  - DERMATOMYOSITIS [None]
  - DIABETES MELLITUS NON-INSULIN-DEPENDENT [None]
  - DIFFICULTY IN WALKING [None]
  - DRY MOUTH [None]
  - DYSPHAGIA [None]
  - EATING DISORDER [None]
  - EXERCISE TOLERANCE DECREASED [None]
  - FALL [None]
  - FATIGUE [None]
  - FLAT AFFECT [None]
  - GASTROINTESTINAL DISORDER [None]
  - GLUCOSE URINE PRESENT [None]
  - HAEMATOCHEZIA [None]
  - HAEMATOMA [None]
  - HAEMORRHOIDS [None]
  - HYPERAESTHESIA [None]
  - HYPERTENSION [None]
  - HYPOAESTHESIA [None]
  - HYPOTHYROIDISM [None]
  - IMPAIRED WORK ABILITY [None]
  - LIVER FUNCTION TEST ABNORMAL [None]
  - LOW DENSITY LIPOPROTEIN INCREASED [None]
  - MALAISE [None]
  - MITOCHONDRIAL MYOPATHY [None]
  - MOBILITY DECREASED [None]
  - MUSCLE ATROPHY [None]
  - MUSCLE CONTRACTIONS INVOLUNTARY [None]
  - MUSCLE SPASTICITY [None]
  - MUSCLE TWITCHING [None]
  - MUSCULAR WEAKNESS [None]
  - MYALGIA [None]
  - MYOPATHY TOXIC [None]
  - NERVE CONDUCTION STUDIES ABNORMAL [None]
  - PAIN [None]
  - PAIN IN EXTREMITY [None]
  - PALPITATIONS [None]
  - PARAESTHESIA [None]
  - PERIPHERAL MOTOR NEUROPATHY [None]
  - PERONEAL NERVE PALSY [None]
  - PLANTAR FASCIITIS [None]
  - POLYMYOSITIS [None]
  - REFLEXES ABNORMAL [None]
  - RESTLESS LEGS SYNDROME [None]
  - SKIN LACERATION [None]
  - SLEEP DISORDER [None]
  - STRESS SYMPTOMS [None]
  - TALIPES [None]
  - TONGUE DISORDER [None]
  - TREMOR [None]
  - VISUAL DISTURBANCE [None]
  - WEIGHT FLUCTUATION [None]
